APPROVED DRUG PRODUCT: SLYND
Active Ingredient: DROSPIRENONE
Strength: 4MG
Dosage Form/Route: TABLET;ORAL
Application: N211367 | Product #001
Applicant: EXELTIS USA INC
Approved: May 23, 2019 | RLD: Yes | RS: Yes | Type: RX

PATENTS:
Patent 10179140 | Expires: Jun 28, 2031
Patent 12090231 | Expires: Jun 28, 2031
Patent 9603860 | Expires: Jun 28, 2031
Patent 10603281 | Expires: Jun 28, 2031
Patent 11413249 | Expires: Jun 28, 2031
Patent 10849857 | Expires: Jun 28, 2031
Patent 11951213 | Expires: Jun 28, 2031
Patent 11478487 | Expires: Jun 28, 2031
Patent 11504334 | Expires: Jun 28, 2031
Patent 11123299 | Expires: Jun 28, 2031
Patent 10987364 | Expires: Jun 28, 2031
Patent 11291632 | Expires: Jun 28, 2031
Patent 11291633 | Expires: Jun 28, 2031
Patent 12280151 | Expires: Jun 28, 2031
Patent 11351122 | Expires: Jun 28, 2031